FAERS Safety Report 10267181 (Version 2)
Quarter: 2014Q3

REPORT INFORMATION
  Report Type: Spontaneous
  Country: US (occurrence: US)
  Receive Date: 20140630
  Receipt Date: 20140717
  Transmission Date: 20150326
  Serious: No
  Sender: FDA-Public Use
  Company Number: US-JNJFOC-20140607233

PATIENT

DRUGS (1)
  1. INVEGA [Suspect]
     Active Substance: PALIPERIDONE
     Indication: PRODUCT USED FOR UNKNOWN INDICATION
     Route: 065

REACTIONS (7)
  - Thinking abnormal [Unknown]
  - Diarrhoea [Unknown]
  - Dizziness [Unknown]
  - Cough [Unknown]
  - Rhinorrhoea [Unknown]
  - Insomnia [Unknown]
  - Gait disturbance [Unknown]
